FAERS Safety Report 11766106 (Version 2)
Quarter: 2016Q2

REPORT INFORMATION
  Report Type: Spontaneous
  Country: FR (occurrence: FR)
  Receive Date: 20151122
  Receipt Date: 20160524
  Transmission Date: 20160815
  Serious: Yes (Other)
  Sender: FDA-Public Use
  Company Number: FR-HOSPIRA-3080322

PATIENT
  Age: 67 Year
  Sex: Male

DRUGS (2)
  1. ETOPOSIDE TEVA [Suspect]
     Active Substance: ETOPOSIDE
     Indication: PANCREATIC CARCINOMA METASTATIC
     Dosage: UNK
     Route: 042
     Dates: start: 20150309, end: 20150930
  2. CARBOPLATIN. [Suspect]
     Active Substance: CARBOPLATIN
     Indication: PANCREATIC CARCINOMA METASTATIC
     Dosage: UNK
     Route: 042
     Dates: start: 20150622, end: 20150930

REACTIONS (2)
  - Visual acuity reduced [Not Recovered/Not Resolved]
  - Optic neuropathy [Not Recovered/Not Resolved]

NARRATIVE: CASE EVENT DATE: 20151001
